FAERS Safety Report 10169548 (Version 1)
Quarter: 2014Q2

REPORT INFORMATION
  Report Type: Spontaneous
  Country: US (occurrence: US)
  Receive Date: 20140513
  Receipt Date: 20140513
  Transmission Date: 20141212
  Serious: Yes (Hospitalization, Other)
  Sender: FDA-Public Use
  Company Number: US-ACTAVIS-2014-09453

PATIENT
  Age: 33 Year
  Sex: Male
  Weight: 56 kg

DRUGS (10)
  1. CLARITHROMYCIN (UNKNOWN) [Suspect]
     Indication: MYCOBACTERIUM AVIUM COMPLEX INFECTION
     Dosage: 1000 MG, BID
     Route: 065
     Dates: start: 19930127
  2. CLARITHROMYCIN (UNKNOWN) [Interacting]
     Dosage: 500 MG, BID
     Route: 065
  3. FLUCONAZOLE (UNKNOWN) [Interacting]
     Indication: PRODUCT USED FOR UNKNOWN INDICATION
     Dosage: 100 MG, QOD
     Route: 065
  4. ETHAMBUTOL [Concomitant]
     Indication: MYCOBACTERIUM AVIUM COMPLEX INFECTION
     Dosage: 800 MG, DAILY
     Route: 065
  5. DIDANOSINE [Concomitant]
     Indication: PRODUCT USED FOR UNKNOWN INDICATION
     Dosage: 200 MG, BID
     Route: 065
  6. GANCICLOVIR [Concomitant]
     Indication: PRODUCT USED FOR UNKNOWN INDICATION
     Dosage: 5 MG/KG, DAILY
     Route: 065
     Dates: start: 19911004
  7. TRIMETHOPRIM SULFAMETHOXAZOLE [Concomitant]
     Indication: PRODUCT USED FOR UNKNOWN INDICATION
     Dosage: ONE DOUBLE-STRENGTH TABLET, THREE TIMES WEEKLY
     Route: 065
  8. HYDROXYZINE [Concomitant]
     Indication: PRODUCT USED FOR UNKNOWN INDICATION
     Dosage: 10 MG, PRN
     Route: 065
  9. HYDROCORTISONE [Concomitant]
     Indication: DERMATITIS
     Dosage: UNK
     Route: 061
  10. RIFABUTIN [Concomitant]
     Indication: MYCOBACTERIUM AVIUM COMPLEX INFECTION
     Dosage: 300 MG, DAILY
     Route: 065
     Dates: start: 19930129

REACTIONS (4)
  - Mania [Recovered/Resolved]
  - Delusion [Recovered/Resolved]
  - Paranoia [Recovered/Resolved]
  - Drug interaction [Unknown]
